FAERS Safety Report 16871663 (Version 1)
Quarter: 2019Q4

REPORT INFORMATION
  Report Type: Spontaneous
  Country: US (occurrence: US)
  Receive Date: 20191001
  Receipt Date: 20191001
  Transmission Date: 20200122
  Serious: No
  Sender: FDA-Public Use
  Company Number: None

PATIENT
  Age: 65 Year
  Sex: Male
  Weight: 87.75 kg

DRUGS (2)
  1. MULTIVITAMIN [Concomitant]
     Active Substance: VITAMINS
  2. VENTOLIN HFA [Suspect]
     Active Substance: ALBUTEROL SULFATE
     Indication: WHEEZING
     Dosage: ?          OTHER STRENGTH:90 MCG PER ACTUATI;QUANTITY:2 PUFF(S);?
     Route: 055
     Dates: start: 20190929, end: 20191001

REACTIONS (1)
  - Throat irritation [None]

NARRATIVE: CASE EVENT DATE: 20190930
